FAERS Safety Report 10644423 (Version 2)
Quarter: 2015Q1

REPORT INFORMATION
  Report Type: Report from Study
  Country: US (occurrence: US)
  Receive Date: 20141210
  Receipt Date: 20150115
  Transmission Date: 20150720
  Serious: Yes (Disabling)
  Sender: FDA-Public Use
  Company Number: US-ACTELION-A-US2014-109120

PATIENT
  Age: 79 Year
  Sex: Female

DRUGS (14)
  1. MACITENTAN [Suspect]
     Active Substance: MACITENTAN
     Indication: COR PULMONALE CHRONIC
     Dosage: 10 MG, QD
     Route: 048
     Dates: start: 20141030
  2. CYMBALTA [Concomitant]
     Active Substance: DULOXETINE HYDROCHLORIDE
  3. PRAMIPEXOLE [Concomitant]
     Active Substance: PRAMIPEXOLE
  4. METOLAZONE. [Concomitant]
     Active Substance: METOLAZONE
  5. LEVEMIR [Concomitant]
     Active Substance: INSULIN DETEMIR
  6. POTASSIUM [Concomitant]
     Active Substance: POTASSIUM
  7. TORSEMIDE. [Concomitant]
     Active Substance: TORSEMIDE
  8. MAGNESIUM [Concomitant]
     Active Substance: MAGNESIUM
  9. ASPIRIN. [Concomitant]
     Active Substance: ASPIRIN
  10. SYNTHROID [Concomitant]
     Active Substance: LEVOTHYROXINE SODIUM
  11. TRADJENTA [Concomitant]
     Active Substance: LINAGLIPTIN
  12. ADCIRCA [Concomitant]
     Active Substance: TADALAFIL
  13. RENVELA [Concomitant]
     Active Substance: SEVELAMER CARBONATE
  14. GABAPENTIN. [Concomitant]
     Active Substance: GABAPENTIN

REACTIONS (3)
  - Pruritus [Unknown]
  - Swelling [Unknown]
  - Rash pruritic [Not Recovered/Not Resolved]

NARRATIVE: CASE EVENT DATE: 20141101
